FAERS Safety Report 17160459 (Version 1)
Quarter: 2019Q4

REPORT INFORMATION
  Report Type: Spontaneous
  Country: SV (occurrence: SV)
  Receive Date: 20191216
  Receipt Date: 20191216
  Transmission Date: 20200122
  Serious: Yes (Other)
  Sender: FDA-Public Use
  Company Number: SV-ELI_LILLY_AND_COMPANY-SV201911012946

PATIENT
  Age: 74 Year
  Sex: Female

DRUGS (1)
  1. ZYPREXA [Suspect]
     Active Substance: OLANZAPINE
     Indication: PRODUCT USED FOR UNKNOWN INDICATION
     Dosage: 10 MG, DAILY
     Route: 065
     Dates: start: 20191122

REACTIONS (4)
  - Psychotic disorder [Unknown]
  - Hypoaesthesia [Recovered/Resolved]
  - Thinking abnormal [Unknown]
  - Neurosis [Unknown]

NARRATIVE: CASE EVENT DATE: 20191122
